FAERS Safety Report 7968793-4 (Version None)
Quarter: 2011Q4

REPORT INFORMATION
  Report Type: 
  Country: None (occurrence: None)
  Receive Date: 20111208
  Receipt Date: 20111124
  Transmission Date: 20120403
  Serious: Yes (Hospitalization)
  Sender: FDA-Public Use
  Company Number: 2011CP000189

PATIENT
  Age: 83 Year
  Sex: Female

DRUGS (6)
  1. PIPERACILLIN AND TAZOBACTAM [Suspect]
     Indication: BACTERIAL INFECTION
     Dosage: 4.5 GRAM;3/1 DAY;IVB
     Route: 040
     Dates: start: 20110328, end: 20110414
  2. TORSEMIDE [Concomitant]
  3. ACETAMINOPHEN [Suspect]
     Indication: PAIN
     Dosage: 1 GRAM;4/1 DAY;IV
     Route: 042
     Dates: start: 20110406, end: 20110413
  4. BETAHISTINE HCL [Concomitant]
  5. SEROQUEL [Concomitant]
  6. NITROGLYCERIN [Suspect]
     Dosage: 1 DOSAGE FORM;1/1 TOTAL
     Dates: start: 20110413, end: 20110414

REACTIONS (1)
  - ERYTHEMA MULTIFORME [None]
